FAERS Safety Report 6005375-8 (Version None)
Quarter: 2008Q4

REPORT INFORMATION
  Report Type: 
  Country: None (occurrence: None)
  Receive Date: 20081216
  Receipt Date: 20081209
  Transmission Date: 20090506
  Serious: Yes (Hospitalization)
  Sender: FDA-Public Use
  Company Number: AU-GILEAD-2008-0017425

PATIENT
  Sex: Male
  Weight: 99 kg

DRUGS (15)
  1. VIREAD [Suspect]
     Indication: HIV INFECTION
     Route: 048
     Dates: start: 20080312
  2. MARAVIROC [Concomitant]
     Indication: HIV INFECTION
     Route: 048
     Dates: start: 20080312
  3. RALTEGRAVIR [Concomitant]
     Indication: HIV INFECTION
     Route: 048
     Dates: start: 20080312
  4. KIVEXA [Concomitant]
     Indication: HIV INFECTION
     Route: 048
     Dates: start: 20080312
  5. ETRAVIRINE [Concomitant]
     Indication: HIV INFECTION
     Route: 048
     Dates: start: 20080312
  6. VALACYCLOVIR HCL [Concomitant]
     Route: 048
  7. LYRICA [Concomitant]
     Route: 048
  8. SOMAC [Concomitant]
     Route: 048
  9. AZITHROMYCIN [Concomitant]
     Route: 048
  10. ESOMEPRAZOLE MAGNESIUM [Concomitant]
     Route: 048
  11. PRAZSOIN HCL [Concomitant]
     Route: 048
  12. VALPROATE SODIUM [Concomitant]
     Route: 048
  13. SOTALOL HCL [Concomitant]
     Route: 048
  14. FLUCONAZOLE [Concomitant]
     Route: 048
  15. DOCUSATE [Concomitant]
     Route: 048

REACTIONS (1)
  - POLYARTHRITIS [None]
